FAERS Safety Report 26130456 (Version 1)
Quarter: 2025Q4

REPORT INFORMATION
  Report Type: Spontaneous
  Country: CN (occurrence: CN)
  Receive Date: 20251208
  Receipt Date: 20251208
  Transmission Date: 20260117
  Serious: Yes (Hospitalization, Other)
  Sender: NOVARTIS
  Company Number: CN-002147023-NVSC2025CN185209

PATIENT
  Age: 74 Year
  Sex: Male
  Weight: 66.5 kg

DRUGS (2)
  1. TAFINLAR [Suspect]
     Active Substance: DABRAFENIB MESYLATE
     Indication: Neoplasm
     Dosage: 150.000 MG, BID
     Route: 048
     Dates: start: 20240820, end: 20251104
  2. TRAMETINIB [Suspect]
     Active Substance: TRAMETINIB
     Indication: Neoplasm
     Dosage: 2.000 MG, QD
     Route: 048
     Dates: start: 20240820, end: 20251124

REACTIONS (5)
  - Myocarditis [Recovering/Resolving]
  - Interleukin level increased [Recovering/Resolving]
  - Procalcitonin increased [Recovering/Resolving]
  - N-terminal prohormone brain natriuretic peptide increased [Recovering/Resolving]
  - Myocardial injury [Recovering/Resolving]

NARRATIVE: CASE EVENT DATE: 20251121
